FAERS Safety Report 14696939 (Version 1)
Quarter: 2018Q1

REPORT INFORMATION
  Report Type: Spontaneous
  Country: US (occurrence: US)
  Receive Date: 20180330
  Receipt Date: 20180330
  Transmission Date: 20180509
  Serious: No
  Sender: FDA-Public Use
  Company Number: US-SA-2017SA091960

PATIENT
  Sex: Female

DRUGS (1)
  1. ALLEGRA [Suspect]
     Active Substance: FEXOFENADINE HYDROCHLORIDE
     Route: 065

REACTIONS (6)
  - Sneezing [Unknown]
  - Rhinorrhoea [Unknown]
  - Therapeutic response decreased [Unknown]
  - Hypersensitivity [Unknown]
  - Eye irritation [Unknown]
  - Drug ineffective [Unknown]
